FAERS Safety Report 14205962 (Version 1)
Quarter: 2017Q4

REPORT INFORMATION
  Report Type: Spontaneous
  Country: US (occurrence: US)
  Receive Date: 20171120
  Receipt Date: 20171120
  Transmission Date: 20180321
  Serious: Yes (Hospitalization)
  Sender: FDA-Public Use
  Company Number: US-VALIDUS PHARMACEUTICALS LLC-US-2017VAL001550

PATIENT
  Age: 3 Year
  Sex: Male

DRUGS (3)
  1. CHLORPROMAZINE HYDROCHLORIDE. [Suspect]
     Active Substance: CHLORPROMAZINE HYDROCHLORIDE
     Indication: SEDATION
     Dosage: 35 MG, SINGLE
     Route: 030
  2. PETHIDINE HYDROCHLORIDE [Suspect]
     Active Substance: MEPERIDINE HYDROCHLORIDE
     Indication: SEDATION
     Dosage: 35 MG, SINGLE
     Route: 030
  3. PROMETHAZINE                       /00033002/ [Suspect]
     Active Substance: PROMETHAZINE HYDROCHLORIDE
     Indication: SEDATION
     Dosage: 20 MG, SINGLE
     Route: 030

REACTIONS (10)
  - Somnolence [Recovered/Resolved]
  - Respiratory depression [Recovered/Resolved]
  - Blood pressure decreased [Recovered/Resolved]
  - Cyanosis [Recovered/Resolved]
  - Unresponsive to stimuli [Recovered/Resolved]
  - Pupillary light reflex tests abnormal [Recovered/Resolved]
  - Cardiovascular disorder [Recovered/Resolved]
  - Cardiac murmur [Recovered/Resolved]
  - Respiratory arrest [Recovered/Resolved]
  - Miosis [Recovered/Resolved]
